FAERS Safety Report 21629194 (Version 2)
Quarter: 2022Q4

REPORT INFORMATION
  Report Type: Spontaneous
  Country: CA (occurrence: CA)
  Receive Date: 20221122
  Receipt Date: 20221207
  Transmission Date: 20230113
  Serious: Yes (Other)
  Sender: FDA-Public Use
  Company Number: CA-PFIZER INC-2021448827

PATIENT
  Age: 56 Year
  Sex: Female
  Weight: 91.5 kg

DRUGS (12)
  1. RUXIENCE [Suspect]
     Active Substance: RITUXIMAB-PVVR
     Indication: Rheumatoid arthritis
     Dosage: 1000 MG, AT DAY 1 AND DAY15, EVERY 6 MONTHS
     Route: 042
     Dates: start: 20210430
  2. RUXIENCE [Suspect]
     Active Substance: RITUXIMAB-PVVR
     Dosage: 1000 MG, AT DAY 1 AND DAY15
     Route: 042
     Dates: start: 20210514
  3. RUXIENCE [Suspect]
     Active Substance: RITUXIMAB-PVVR
     Dosage: 1000 MG, AT DAY 1 AND DAY15
     Route: 042
     Dates: start: 20220518, end: 20220518
  4. RUXIENCE [Suspect]
     Active Substance: RITUXIMAB-PVVR
     Dosage: 1000 MG, AT DAY 1 AND DAY15
     Route: 042
     Dates: start: 20220531, end: 20220531
  5. RUXIENCE [Suspect]
     Active Substance: RITUXIMAB-PVVR
     Dosage: 1000 MG, AT DAY 1 AND DAY15
     Route: 042
     Dates: start: 20221116
  6. RUXIENCE [Suspect]
     Active Substance: RITUXIMAB-PVVR
     Dosage: 1000 MG, AT DAY 1 AND DAY15
     Route: 042
     Dates: start: 20221130
  7. ACETAMINOPHEN [Concomitant]
     Active Substance: ACETAMINOPHEN
     Dosage: 650 MG
     Dates: start: 20210514
  8. ACTEMRA [Concomitant]
     Active Substance: TOCILIZUMAB
     Dosage: 1 DF, UNK DOSE
  9. DIPHENHYDRAMINE HYDROCHLORIDE [Concomitant]
     Active Substance: DIPHENHYDRAMINE HYDROCHLORIDE
     Dosage: 50 MG
     Dates: start: 20210514
  10. METHOTREXATE [Concomitant]
     Active Substance: METHOTREXATE
     Dosage: 1 DF, DOSE UNK
  11. PREDNISONE [Concomitant]
     Active Substance: PREDNISONE
     Dosage: 1 DF (7.5 -15 MG )
     Route: 048
  12. VALTREX [Concomitant]
     Active Substance: VALACYCLOVIR HYDROCHLORIDE
     Indication: Oral herpes
     Dosage: UNK, PATIENT TOOK 4 PILLS IN THE DAY AND 4 OTHER PILLS 12 HOURS LATER

REACTIONS (9)
  - Upper limb fracture [Recovered/Resolved]
  - Blood pressure fluctuation [Not Recovered/Not Resolved]
  - Localised infection [Unknown]
  - Oral herpes [Recovered/Resolved]
  - Fatigue [Recovered/Resolved]
  - Fatigue [Recovered/Resolved]
  - Fatigue [Unknown]
  - Off label use [Unknown]
  - Product administration error [Unknown]

NARRATIVE: CASE EVENT DATE: 20210401
